FAERS Safety Report 6668370-1 (Version None)
Quarter: 2010Q2

REPORT INFORMATION
  Report Type: 
  Country: None (occurrence: None)
  Receive Date: 20100406
  Receipt Date: 20100402
  Transmission Date: 20101027
  Serious: Yes (Death)
  Sender: FDA-Public Use
  Company Number: US-ASTRAZENECA-2010SE14417

PATIENT

DRUGS (1)
  1. SEROQUEL [Suspect]
     Dosage: 3700 MG
     Route: 048

REACTIONS (1)
  - OVERDOSE [None]
